FAERS Safety Report 8293862-1 (Version None)
Quarter: 2012Q2

REPORT INFORMATION
  Report Type: 
  Country: None (occurrence: None)
  Receive Date: 20120418
  Receipt Date: 20120416
  Transmission Date: 20120825
  Serious: No
  Sender: FDA-Public Use
  Company Number: US-PFIZER INC-2012095225

PATIENT
  Sex: Female
  Weight: 89.342 kg

DRUGS (2)
  1. CHANTIX [Suspect]
     Indication: SMOKING CESSATION THERAPY
     Dosage: 0.5 MG, 1X/DAY
     Route: 048
     Dates: start: 20090601
  2. CHANTIX [Suspect]
     Dosage: 1 MG, UNK
     Route: 048

REACTIONS (2)
  - NIGHTMARE [None]
  - IRRITABILITY [None]
